FAERS Safety Report 21755710 (Version 7)
Quarter: 2023Q1

REPORT INFORMATION
  Report Type: Spontaneous
  Country: JP (occurrence: JP)
  Receive Date: 20221220
  Receipt Date: 20230124
  Transmission Date: 20230417
  Serious: Yes (Other)
  Sender: FDA-Public Use
  Company Number: JP-BRISTOL-MYERS SQUIBB COMPANY-BMS-2021-123283

PATIENT
  Age: 74 Year
  Sex: Male

DRUGS (2)
  1. YERVOY [Suspect]
     Active Substance: IPILIMUMAB
     Indication: Pleural mesothelioma malignant
     Route: 041
  2. OPDIVO [Suspect]
     Active Substance: NIVOLUMAB
     Indication: Pleural mesothelioma malignant
     Route: 041

REACTIONS (5)
  - Immune-mediated dermatitis [Recovered/Resolved]
  - Immune-mediated hypophysitis [Recovered/Resolved]
  - Adrenal insufficiency [Recovering/Resolving]
  - Infectious pleural effusion [Recovering/Resolving]
  - Thyroid disorder [Recovered/Resolved]
